FAERS Safety Report 21198467 (Version 1)
Quarter: 2022Q3

REPORT INFORMATION
  Report Type: Spontaneous
  Country: GB (occurrence: GB)
  Receive Date: 20220811
  Receipt Date: 20220811
  Transmission Date: 20221027
  Serious: Yes (Disabling, Other)
  Sender: FDA-Public Use
  Company Number: GB-MHRA-TPP18222085C8591800YC1658841808226

PATIENT
  Age: 78 Year
  Sex: Female
  Weight: 97 kg

DRUGS (4)
  1. ROSUVASTATIN [Suspect]
     Active Substance: ROSUVASTATIN
     Indication: Ill-defined disorder
     Dosage: 1 DOSAGE FORM (TAKE ONE IN THE EVENING MON, WED AND FRIDAY TO ...)
     Route: 065
     Dates: start: 20220314
  2. BENDROFLUMETHIAZIDE [Concomitant]
     Active Substance: BENDROFLUMETHIAZIDE
     Indication: Product used for unknown indication
     Dosage: 1 DOSAGE FORM, ONCE A DAY (TAKE ONE EACH MORNING)
     Route: 065
     Dates: start: 20220307
  3. LEVOTHYROXINE [Concomitant]
     Active Substance: LEVOTHYROXINE
     Indication: Product used for unknown indication
     Dosage: 1 DOSAGE FORM, ONCE A DAY (ONE TO BE TAKEN EACH MORNING AT LEAST 30 MINUTE...)
     Route: 065
     Dates: start: 20220307
  4. PRAVASTATIN [Concomitant]
     Active Substance: PRAVASTATIN
     Indication: Product used for unknown indication
     Dosage: 1 DOSAGE FORM, ONCE A DAY (TAKE ONE AT NIGHT)
     Route: 065
     Dates: start: 20220725

REACTIONS (2)
  - Mental impairment [Recovering/Resolving]
  - Headache [Recovering/Resolving]

NARRATIVE: CASE EVENT DATE: 20220726
